FAERS Safety Report 7774771-0 (Version None)
Quarter: 2011Q3

REPORT INFORMATION
  Report Type: 
  Country: None (occurrence: None)
  Receive Date: 20110923
  Receipt Date: 20110913
  Transmission Date: 20111222
  Serious: Yes (Hospitalization)
  Sender: FDA-Public Use
  Company Number: US-ACTELION-A-NJ2011-53978

PATIENT

DRUGS (2)
  1. TRACLEER [Suspect]
     Indication: PULMONARY ARTERIAL HYPERTENSION
     Dosage: UNK
     Route: 048
     Dates: start: 20100219
  2. ADCIRCA [Concomitant]

REACTIONS (4)
  - BREATH SOUNDS ABNORMAL [None]
  - BACK PAIN [None]
  - PRODUCTIVE COUGH [None]
  - PNEUMONIA [None]
